FAERS Safety Report 9139821 (Version 2)
Quarter: 2013Q2

REPORT INFORMATION
  Report Type: Report from Study
  Country: ES (occurrence: ES)
  Receive Date: 20130305
  Receipt Date: 20130424
  Transmission Date: 20140414
  Serious: Yes (Other)
  Sender: FDA-Public Use
  Company Number: ES-CELGENEUS-144-21880-13023306

PATIENT
  Age: 82 Year
  Sex: Male
  Weight: 75 kg

DRUGS (5)
  1. REVLIMID [Suspect]
     Indication: PLASMA CELL MYELOMA
     Route: 048
     Dates: start: 20110711, end: 20121111
  2. VELCADE [Suspect]
     Indication: PLASMA CELL MYELOMA
     Route: 041
     Dates: start: 20110808, end: 20121217
  3. DEXAMETHASONE [Suspect]
     Indication: PLASMA CELL MYELOMA
     Route: 048
     Dates: start: 20110711, end: 20121112
  4. PREDNISONE [Suspect]
     Indication: PLASMA CELL MYELOMA
     Route: 048
     Dates: start: 20110808, end: 20121129
  5. MELPHALAN [Suspect]
     Indication: PLASMA CELL MYELOMA
     Route: 048
     Dates: start: 20110808, end: 20121129

REACTIONS (1)
  - Prostate cancer recurrent [Not Recovered/Not Resolved]
